FAERS Safety Report 15430876 (Version 2)
Quarter: 2019Q1

REPORT INFORMATION
  Report Type: Spontaneous
  Country: BR (occurrence: BR)
  Receive Date: 20180926
  Receipt Date: 20190123
  Transmission Date: 20190417
  Serious: Yes (Death)
  Sender: FDA-Public Use
  Company Number: BR-ANIPHARMA-2018-BR-000030

PATIENT
  Age: 58 Year
  Sex: Male

DRUGS (2)
  1. ATACAND HCT [Suspect]
     Active Substance: CANDESARTAN CILEXETIL\HYDROCHLOROTHIAZIDE
     Indication: HYPERTENSION
     Dosage: 16/12.5 MG
     Route: 048
     Dates: start: 2018
  2. CRESTOR [Suspect]
     Active Substance: ROSUVASTATIN CALCIUM
     Dosage: 10 MG UNK
     Route: 048

REACTIONS (4)
  - Drug ineffective [Fatal]
  - Malaise [Not Recovered/Not Resolved]
  - Death [Not Recovered/Not Resolved]
  - Hypertension [Fatal]
